FAERS Safety Report 8110503-4 (Version None)
Quarter: 2012Q1

REPORT INFORMATION
  Report Type: 
  Country: None (occurrence: None)
  Receive Date: 20120202
  Receipt Date: 20120124
  Transmission Date: 20120608
  Serious: Yes (Other)
  Sender: FDA-Public Use
  Company Number: US-ASTRAZENECA-2012SE05435

PATIENT
  Age: 48 Year
  Sex: Female

DRUGS (5)
  1. WELLBUTRIN [Concomitant]
  2. EFFEXOR XR [Concomitant]
  3. VISTARIL [Concomitant]
  4. SEROQUEL [Suspect]
     Route: 048
  5. LEVOTHROID [Concomitant]

REACTIONS (3)
  - SUICIDAL IDEATION [None]
  - AFFECT LABILITY [None]
  - DRUG DOSE OMISSION [None]
